FAERS Safety Report 6663631-4 (Version None)
Quarter: 2010Q1

REPORT INFORMATION
  Report Type: 
  Country: None (occurrence: None)
  Receive Date: 20100331
  Receipt Date: 20100331
  Transmission Date: 20100710
  Serious: Yes (Hospitalization, Other)
  Sender: FDA-Public Use
  Company Number: None

PATIENT
  Age: 40 Year
  Sex: Female
  Weight: 124.7392 kg

DRUGS (1)
  1. AMRIX [Suspect]
     Indication: BACK PAIN
     Dosage: 1 TABLET ONCE DAILY PO
     Route: 048
     Dates: start: 20100223, end: 20100322

REACTIONS (14)
  - BLOOD PRESSURE DIASTOLIC INCREASED [None]
  - CONFUSIONAL STATE [None]
  - DISTURBANCE IN ATTENTION [None]
  - DIZZINESS [None]
  - DRUG HYPERSENSITIVITY [None]
  - DYSPNOEA [None]
  - ERYTHEMA [None]
  - FACIAL PALSY [None]
  - HEART RATE INCREASED [None]
  - HYPERTENSION [None]
  - HYPOAESTHESIA [None]
  - INFLAMMATION [None]
  - NAUSEA [None]
  - PALPITATIONS [None]
